FAERS Safety Report 13178559 (Version 2)
Quarter: 2017Q2

REPORT INFORMATION
  Report Type: Spontaneous
  Country: US (occurrence: US)
  Receive Date: 20170202
  Receipt Date: 20170515
  Transmission Date: 20170830
  Serious: Yes (Other)
  Sender: FDA-Public Use
  Company Number: US-TEVA-728381ACC

PATIENT
  Age: 40 Year
  Sex: Female
  Weight: 65.83 kg

DRUGS (1)
  1. PLAN B ONE-STEP [Suspect]
     Active Substance: LEVONORGESTREL
     Indication: POST COITAL CONTRACEPTION
     Dates: start: 20161231, end: 20161231

REACTIONS (6)
  - Abortion induced [Unknown]
  - Dysmenorrhoea [Not Recovered/Not Resolved]
  - Exposure during pregnancy [Unknown]
  - Vaginal haemorrhage [Not Recovered/Not Resolved]
  - Pregnancy after post coital contraception [Unknown]
  - Headache [Not Recovered/Not Resolved]

NARRATIVE: CASE EVENT DATE: 20161231
